FAERS Safety Report 5883470-1 (Version None)
Quarter: 2008Q3

REPORT INFORMATION
  Report Type: 
  Country: None (occurrence: None)
  Receive Date: 20080915
  Receipt Date: 20080909
  Transmission Date: 20090109
  Serious: Yes (Other)
  Sender: FDA-Public Use
  Company Number: US-ROCHE-581409

PATIENT
  Sex: Male
  Weight: 81.6 kg

DRUGS (2)
  1. CAPECITABINE [Suspect]
     Dosage: TWO WEEKS ON AND ONE WEEK OFF OF 21 DAYS CYCLE
     Route: 048
     Dates: start: 20080423, end: 20080612
  2. CAPECITABINE [Suspect]
     Dosage: TWO WEEKS ON AND ONE WEEK OFF OF 21 DAYS CYCLE AND PATIENT RECEIVED 4 CYCLES TOTAL
     Route: 048
     Dates: start: 20080612, end: 20080728

REACTIONS (1)
  - DISEASE PROGRESSION [None]
